FAERS Safety Report 20455865 (Version 11)
Quarter: 2024Q2

REPORT INFORMATION
  Report Type: Spontaneous
  Country: US (occurrence: US)
  Receive Date: 20220210
  Receipt Date: 20240521
  Transmission Date: 20240715
  Serious: Yes (Other)
  Sender: FDA-Public Use
  Company Number: US-PFIZER INC-202101596363

PATIENT
  Age: 55 Year
  Sex: Female

DRUGS (6)
  1. IBRANCE [Suspect]
     Active Substance: PALBOCICLIB
     Indication: Breast cancer metastatic
     Dosage: 2 WEEKS ON, THEN 2 WEEKS OFF
  2. IBRANCE [Suspect]
     Active Substance: PALBOCICLIB
     Dosage: TABLET EVERY DAY ON DAYS 1-21 EVERY 28 DAY CYCLE
     Route: 048
  3. IBRANCE [Suspect]
     Active Substance: PALBOCICLIB
     Dosage: 1 TAB PO QD 14 DAYS ON 14 DAY OFF; #21 (35DS)
     Route: 048
  4. IBRANCE [Suspect]
     Active Substance: PALBOCICLIB
     Dosage: 4 DAYS ON 14 DAY OFF
  5. IBRANCE [Suspect]
     Active Substance: PALBOCICLIB
     Dosage: 1 WEEK ON AND 1 WEEK OFF
  6. IBRANCE [Suspect]
     Active Substance: PALBOCICLIB
     Dosage: 1 TAB DAILY ON D1-14, EVERY 28 D
     Route: 048

REACTIONS (3)
  - Cytopenia [Unknown]
  - Off label use [Unknown]
  - Product dose omission issue [Unknown]
